FAERS Safety Report 11284866 (Version 1)
Quarter: 2015Q3

REPORT INFORMATION
  Report Type: Spontaneous
  Country: US (occurrence: US)
  Receive Date: 20150720
  Receipt Date: 20150720
  Transmission Date: 20151125
  Serious: Yes (Hospitalization)
  Sender: FDA-Public Use
  Company Number: US-JNJFOC-20150713647

PATIENT
  Age: 56 Year
  Sex: Female

DRUGS (1)
  1. IMBRUVICA [Suspect]
     Active Substance: IBRUTINIB
     Indication: EXTRANODAL MARGINAL ZONE B-CELL LYMPHOMA (MALT TYPE)
     Route: 048
     Dates: start: 20150701, end: 20150703

REACTIONS (7)
  - Haematemesis [Unknown]
  - Haemoptysis [Unknown]
  - Abdominal pain [Unknown]
  - Off label use [Recovered/Resolved]
  - Nausea [Unknown]
  - Haematuria [Unknown]
  - Headache [Unknown]

NARRATIVE: CASE EVENT DATE: 20150701
